FAERS Safety Report 9990733 (Version 1)
Quarter: 2014Q1

REPORT INFORMATION
  Report Type: Report from Study
  Country: US (occurrence: US)
  Receive Date: 20140310
  Receipt Date: 20140310
  Transmission Date: 20141002
  Serious: No
  Sender: FDA-Public Use
  Company Number: US-ABBVIE-13P-163-1135040-00

PATIENT
  Age: 32 Year
  Sex: Female

DRUGS (4)
  1. HUMIRA [Suspect]
     Indication: CROHN^S DISEASE
     Dates: start: 20130802, end: 20130802
  2. HUMIRA [Suspect]
     Dates: start: 20130816
  3. METHOTREXATE [Concomitant]
     Indication: CROHN^S DISEASE
     Route: 048
  4. VITAMIN D [Concomitant]
     Indication: OSTEOPOROSIS

REACTIONS (3)
  - Wrong technique in drug usage process [Recovered/Resolved]
  - Incorrect dose administered [Recovered/Resolved]
  - Injection site pain [Recovered/Resolved]
